FAERS Safety Report 14755433 (Version 6)
Quarter: 2020Q3

REPORT INFORMATION
  Report Type: Report from Study
  Country: CN (occurrence: CN)
  Receive Date: 20180413
  Receipt Date: 20181003
  Transmission Date: 20201104
  Serious: Yes (Death, Hospitalization)
  Sender: FDA-Public Use
  Company Number: CN-ROCHE-2105626

PATIENT
  Age: 62 Year
  Sex: Male
  Weight: 68 kg

DRUGS (19)
  1. VORICONAZOLE. [Concomitant]
     Active Substance: VORICONAZOLE
     Route: 065
     Dates: start: 20180523
  2. SERTRALINE HYDROCHLORIDE. [Concomitant]
     Active Substance: SERTRALINE HYDROCHLORIDE
     Route: 048
     Dates: start: 20180411
  3. ENZALUTAMIDE [Suspect]
     Active Substance: ENZALUTAMIDE
     Indication: HORMONE-REFRACTORY PROSTATE CANCER
     Dosage: MOST RECENT DOSE PRIOT TO SAE: 21/MAR/2018: 160 MG
     Route: 048
     Dates: start: 20180226
  4. BICALUTAMIDE. [Concomitant]
     Active Substance: BICALUTAMIDE
     Route: 048
     Dates: start: 20160526
  5. GOSERELIN ACETATE [Concomitant]
     Active Substance: GOSERELIN ACETATE
     Route: 030
     Dates: start: 20160331
  6. CEFODIZIME [Concomitant]
     Active Substance: CEFODIZIME SODIUM
     Route: 065
     Dates: start: 20180418, end: 20180423
  7. EPINEPHRINE. [Concomitant]
     Active Substance: EPINEPHRINE
     Route: 065
     Dates: start: 20180609, end: 20180609
  8. NIKETHAMIDE [Concomitant]
     Active Substance: NIKETHAMIDE
     Route: 065
     Dates: start: 20180609, end: 20180609
  9. MOXIFLOXACIN. [Concomitant]
     Active Substance: MOXIFLOXACIN
     Route: 065
     Dates: start: 20180418, end: 20180502
  10. ZOLEDRONIC ACID [Concomitant]
     Active Substance: ZOLEDRONIC ACID
     Route: 042
     Dates: start: 20160526
  11. BIAPENEM [Concomitant]
     Active Substance: BIAPENEM
     Route: 065
     Dates: start: 20180424, end: 20180502
  12. TIGECYCLINE. [Concomitant]
     Active Substance: TIGECYCLINE
     Route: 065
     Dates: start: 20180503
  13. FENTANYL. [Concomitant]
     Active Substance: FENTANYL
     Route: 065
  14. ATEZOLIZUMAB. [Suspect]
     Active Substance: ATEZOLIZUMAB
     Indication: HORMONE-REFRACTORY PROSTATE CANCER
     Dosage: MOST RECENT DOSE PRIOR TO SAE: 20/MAR/2018: 1200 MG
     Route: 042
     Dates: start: 20180226
  15. OLANZAPINE. [Concomitant]
     Active Substance: OLANZAPINE
     Route: 048
     Dates: start: 20180411
  16. MOSAPRIDE CITRATE [Concomitant]
     Active Substance: MOSAPRIDE CITRATE
     Route: 048
     Dates: start: 20180411
  17. LEVOFLOXACIN. [Concomitant]
     Active Substance: LEVOFLOXACIN
     Route: 065
     Dates: start: 20180605
  18. DOPAMINE [Concomitant]
     Active Substance: DOPAMINE HYDROCHLORIDE
     Route: 065
     Dates: start: 20180608
  19. ONDANSETRON HYDROCHLORIDE. [Concomitant]
     Active Substance: ONDANSETRON HYDROCHLORIDE
     Dosage: OT (OTIC)
     Route: 065

REACTIONS (1)
  - Cerebral infarction [Not Recovered/Not Resolved]

NARRATIVE: CASE EVENT DATE: 20180322
